FAERS Safety Report 9541664 (Version 1)
Quarter: 2013Q2

REPORT INFORMATION
  Report Type: Spontaneous
  Country: US (occurrence: None)
  Receive Date: 20130524
  Receipt Date: 20130524
  Transmission Date: 20140414
  Serious: No
  Sender: FDA-Public Use
  Company Number: PHEH2012US023746

PATIENT
  Age: 45 Year
  Sex: Female
  Weight: 103 kg

DRUGS (16)
  1. GILENYA (FINGOLIMOD) [Suspect]
     Indication: RELAPSING-REMITTING MULTIPLE SCLEROSIS
     Route: 048
  2. ONGLYZA (SAXAGLIPTIN HYDROCHLORIDE), 2.5 MG [Concomitant]
  3. XANAX (ALPRAZOLAM) TABLET, 0.5 MG [Concomitant]
  4. ZOLPIDEM (ZOLPIDEM) TABLET, 10 MG [Concomitant]
  5. FLUOXETINE (FLUOXETINE) CAPSULE, 10 MG [Concomitant]
  6. LISINOPRIL W/ HYDROCHLOROTHIAZIDE (HYDROCHLOROTHIAZIDE, LISINOPRIL) 20/25 MG [Concomitant]
  7. FISH OIL (FISH OIL) CAPSULE [Concomitant]
  8. VITAMIN D (ERGOCALCIFEROL) CAPSULE, 1000 IU [Concomitant]
  9. HYDROCODONE (HYDROCODONE) SYRUP [Concomitant]
  10. MODAFINIL (MODAFINIL) TABLET, 100 MG [Concomitant]
  11. TRAZODONE HYDROCHLORIDE (TRAZODONE HYDROCHLORIDE) [Concomitant]
  12. ATORVASTATIN (ATORVASTATIN) [Concomitant]
  13. VICODIN (HYDROCODONE BITARTRATE, PARACETAMOL) [Concomitant]
  14. PROVIGIL (MODAFINIL) [Concomitant]
  15. AMBIEN (ZOLPIDEM TARTRATE) [Concomitant]
  16. ABILIFY (ARIPIPRAZOLE) [Concomitant]

REACTIONS (2)
  - Dysgeusia [None]
  - Eructation [None]
